FAERS Safety Report 7536742-9 (Version None)
Quarter: 2011Q2

REPORT INFORMATION
  Report Type: 
  Country: None (occurrence: None)
  Receive Date: 20110609
  Receipt Date: 20110603
  Transmission Date: 20111010
  Serious: Yes (Death, Hospitalization)
  Sender: FDA-Public Use
  Company Number: B0724889A

PATIENT
  Age: 76 Year
  Sex: Female

DRUGS (1)
  1. AVANDIA [Suspect]
     Indication: DIABETES MELLITUS
     Dosage: 8MG PER DAY
     Route: 048
     Dates: start: 20010219, end: 20010929

REACTIONS (4)
  - DEATH [None]
  - CARDIAC FAILURE CONGESTIVE [None]
  - CARDIAC ARREST [None]
  - MYOCARDIAL INFARCTION [None]
